FAERS Safety Report 7252127-7 (Version None)
Quarter: 2011Q1

REPORT INFORMATION
  Report Type: 
  Country: None (occurrence: None)
  Receive Date: 20110128
  Receipt Date: 20100427
  Transmission Date: 20110831
  Serious: No
  Sender: FDA-Public Use
  Company Number: US-ABBOTT-10P-163-0642130-00

PATIENT
  Sex: Male
  Weight: 68.1 kg

DRUGS (2)
  1. CLOBETASOL PROPIONATE [Concomitant]
     Indication: PSORIASIS
     Route: 061
  2. HUMIRA [Suspect]
     Indication: PSORIASIS
     Dates: start: 20100223

REACTIONS (5)
  - INCORRECT DOSE ADMINISTERED [None]
  - DRUG PRESCRIBING ERROR [None]
  - DRUG DISPENSING ERROR [None]
  - INAPPROPRIATE SCHEDULE OF DRUG ADMINISTRATION [None]
  - PSORIASIS [None]
